FAERS Safety Report 9903118 (Version 2)
Quarter: 2014Q1

REPORT INFORMATION
  Report Type: Spontaneous
  Country: US (occurrence: US)
  Receive Date: 20140217
  Receipt Date: 20140319
  Transmission Date: 20141002
  Serious: No
  Sender: FDA-Public Use
  Company Number: US-009507513-1402USA006076

PATIENT
  Age: 18 Year
  Sex: Female
  Weight: 58.25 kg

DRUGS (1)
  1. NUVARING [Suspect]
     Indication: CONTRACEPTION
     Dosage: 0.12 MG ETONOGESTREL/0.015 MG ETHINYL ESTRADIOL
     Route: 067
     Dates: start: 20140130, end: 20140210

REACTIONS (7)
  - Skin swelling [Recovered/Resolved]
  - Chest discomfort [Recovered/Resolved]
  - Feeling hot [Recovered/Resolved]
  - Oedema peripheral [Recovered/Resolved]
  - Joint warmth [Recovered/Resolved]
  - Rash generalised [Recovered/Resolved]
  - Rash generalised [Recovered/Resolved]
